FAERS Safety Report 11289928 (Version 1)
Quarter: 2015Q3

REPORT INFORMATION
  Report Type: Spontaneous
  Country: US (occurrence: US)
  Receive Date: 20150721
  Receipt Date: 20150721
  Transmission Date: 20151125
  Serious: Yes (Other)
  Sender: FDA-Public Use
  Company Number: US-MYLANLABS-2015M1024222

PATIENT

DRUGS (1)
  1. DOXYCYCLINE. [Suspect]
     Active Substance: DOXYCYCLINE
     Indication: ACNE CYSTIC
     Dosage: UNK
     Dates: start: 2002, end: 2012

REACTIONS (2)
  - Teeth brittle [Not Recovered/Not Resolved]
  - Tooth discolouration [Not Recovered/Not Resolved]
